FAERS Safety Report 6570731-6 (Version None)
Quarter: 2010Q1

REPORT INFORMATION
  Report Type: 
  Country: None (occurrence: None)
  Receive Date: 20100204
  Receipt Date: 20100127
  Transmission Date: 20100710
  Serious: Yes (Life-Threatening)
  Sender: FDA-Public Use
  Company Number: B0629329A

PATIENT
  Sex: Male

DRUGS (4)
  1. FORTUM [Suspect]
     Dosage: 1UNIT PER DAY
     Route: 042
     Dates: end: 20100111
  2. PREVISCAN [Suspect]
     Dosage: 20MG PER DAY
     Route: 048
     Dates: start: 19920101, end: 20100111
  3. AMIKIN [Suspect]
     Dosage: 1UNIT PER DAY
     Route: 042
     Dates: end: 20100111
  4. CORDARONE [Concomitant]
     Indication: DRUG USE FOR UNKNOWN INDICATION
     Route: 065

REACTIONS (8)
  - DIVERTICULUM INTESTINAL [None]
  - DRUG INTERACTION [None]
  - HAEMORRHAGIC ANAEMIA [None]
  - INTERNATIONAL NORMALISED RATIO INCREASED [None]
  - LARGE INTESTINAL ULCER [None]
  - MELAENA [None]
  - RECTAL HAEMORRHAGE [None]
  - SHOCK HAEMORRHAGIC [None]
